FAERS Safety Report 8557560-9 (Version None)
Quarter: 2012Q2

REPORT INFORMATION
  Report Type: 
  Country: None (occurrence: None)
  Receive Date: 20120418
  Receipt Date: 20100521
  Transmission Date: 20120825
  Serious: Yes (Hospitalization, Other)
  Sender: FDA-Public Use
  Company Number: PHHY2010US23353

PATIENT
  Age: 54 Year
  Sex: Male

DRUGS (9)
  1. CRESTOR (ROSUVASTATIN CALCIU) [Concomitant]
  2. NORVASC [Concomitant]
  3. ISOSORBIDE DINITRATE [Concomitant]
  4. RANEXA [Concomitant]
  5. ASPIRIN [Concomitant]
  6. DIOVAN HCT [Suspect]
     Dosage: 160/12.5 MG ONCE A DAY; 160/12.5 MG TWICE A DAY; 320/12.5 MG ONCE DAY
  7. PLAVIX [Concomitant]
  8. CARDURA [Concomitant]
  9. SOTALOL HCL [Concomitant]

REACTIONS (5)
  - BLOOD PRESSURE INADEQUATELY CONTROLLED [None]
  - LOSS OF CONSCIOUSNESS [None]
  - SYNCOPE [None]
  - BLOOD PRESSURE INCREASED [None]
  - HYPOTENSION [None]
